FAERS Safety Report 9329289 (Version 1)
Quarter: 2013Q2

REPORT INFORMATION
  Report Type: Spontaneous
  Country: US (occurrence: US)
  Receive Date: 20130604
  Receipt Date: 20130604
  Transmission Date: 20140414
  Serious: No
  Sender: FDA-Public Use
  Company Number: US-SANOFI-AVENTIS-2013SA025511

PATIENT
  Age: 74 Year
  Sex: Female

DRUGS (3)
  1. LANTUS SOLOSTAR [Suspect]
     Indication: TYPE 2 DIABETES MELLITUS
     Dosage: DOSE:16 UNIT(S)
     Route: 051
     Dates: start: 20130207
  2. LANTUS SOLOSTAR [Suspect]
     Indication: TYPE 2 DIABETES MELLITUS
     Dosage: DOSE:36 UNIT(S)
     Route: 058
     Dates: start: 201303
  3. SOLOSTAR [Suspect]
     Indication: DEVICE THERAPY
     Dates: start: 20130207

REACTIONS (6)
  - Dry mouth [Unknown]
  - Pain in extremity [Unknown]
  - Somnolence [Unknown]
  - Injection site pain [Unknown]
  - Drug ineffective [Unknown]
  - Incorrect storage of drug [Unknown]
